FAERS Safety Report 23363473 (Version 2)
Quarter: 2024Q1

REPORT INFORMATION
  Report Type: Report from Study
  Country: CA (occurrence: CA)
  Receive Date: 20240103
  Receipt Date: 20240109
  Transmission Date: 20240410
  Serious: Yes (Hospitalization, Other)
  Sender: FDA-Public Use
  Company Number: CA-VER-202300545

PATIENT
  Age: 81 Year
  Sex: Male

DRUGS (3)
  1. TRIPTORELIN PAMOATE [Suspect]
     Active Substance: TRIPTORELIN PAMOATE
     Indication: Prostate cancer
     Dosage: ONCE PER 3 MONTHS
     Route: 030
     Dates: start: 20230606, end: 20230606
  2. TRIPTORELIN PAMOATE [Suspect]
     Active Substance: TRIPTORELIN PAMOATE
     Indication: Prostate cancer
     Dosage: ONCE PER 3 MONTHS (11.25 MG,3 M)
     Route: 030
     Dates: start: 20230907, end: 20230907
  3. TRIPTORELIN PAMOATE [Suspect]
     Active Substance: TRIPTORELIN PAMOATE
     Indication: Prostate cancer
     Dosage: 11.25 MG, ONCE PER 3 MONTHS (11.25 MG,3 M)
     Route: 030
     Dates: start: 20231218, end: 20231218

REACTIONS (4)
  - Illness [Unknown]
  - Septic shock [Recovering/Resolving]
  - Inappropriate schedule of product administration [Recovered/Resolved]
  - Urinary tract infection [Recovering/Resolving]

NARRATIVE: CASE EVENT DATE: 20231201
